FAERS Safety Report 6653375-7 (Version None)
Quarter: 2010Q1

REPORT INFORMATION
  Report Type: 
  Country: None (occurrence: None)
  Receive Date: 20100326
  Receipt Date: 20100316
  Transmission Date: 20100710
  Serious: Yes (Other)
  Sender: FDA-Public Use
  Company Number: PHEH2010US01320

PATIENT
  Sex: Female

DRUGS (2)
  1. GLEEVEC [Suspect]
     Indication: GASTROINTESTINAL STROMAL TUMOUR
     Dosage: 400 MG, ONCE A DAY
     Dates: start: 20091201
  2. GLEEVEC [Suspect]
     Dosage: 300 MG, Q DAY
     Route: 048

REACTIONS (12)
  - ARTHRALGIA [None]
  - CHILLS [None]
  - DEPRESSION [None]
  - EAR DISORDER [None]
  - EYE OEDEMA [None]
  - EYE SWELLING [None]
  - LACRIMATION INCREASED [None]
  - MALAISE [None]
  - OCULAR HYPERAEMIA [None]
  - OEDEMA PERIPHERAL [None]
  - RASH GENERALISED [None]
  - SINUS DISORDER [None]
